FAERS Safety Report 25181554 (Version 3)
Quarter: 2025Q3

REPORT INFORMATION
  Report Type: Spontaneous
  Country: EU (occurrence: EU)
  Receive Date: 20250410
  Receipt Date: 20250722
  Transmission Date: 20251020
  Serious: Yes (Other)
  Sender: AUROBINDO
  Company Number: EU-Accord-475113

PATIENT
  Age: 6 Decade
  Sex: Male

DRUGS (14)
  1. POSACONAZOLE [Suspect]
     Active Substance: POSACONAZOLE
     Indication: Antifungal prophylaxis
     Dosage: 200 MILLIGRAM, FOUR TIMES/DAY (THROUGH A NASOGASTRIC TUBE)
  2. VORICONAZOLE [Suspect]
     Active Substance: VORICONAZOLE
     Indication: Antifungal prophylaxis
     Dosage: 200 MILLIGRAM, ONCE A DAY
     Route: 065
  3. ISAVUCONAZOLE [Suspect]
     Active Substance: ISAVUCONAZOLE
     Indication: Prophylaxis
     Dosage: 250 MILLIGRAM, ONCE A DAY
     Route: 042
  4. ISAVUCONAZOLE [Suspect]
     Active Substance: ISAVUCONAZOLE
     Dosage: 200 MILLIGRAM, ONCE A DAY
     Route: 042
  5. HALOPERIDOL [Interacting]
     Active Substance: HALOPERIDOL
     Indication: Hallucination, visual
     Dosage: 2 MILLIGRAM, ONCE A DAY (AT EVENING)
     Route: 065
  6. HALOPERIDOL [Interacting]
     Active Substance: HALOPERIDOL
     Indication: Insomnia
  7. HALOPERIDOL [Interacting]
     Active Substance: HALOPERIDOL
     Indication: Patient elopement
  8. HALOPERIDOL [Interacting]
     Active Substance: HALOPERIDOL
     Indication: Delirium
  9. TIAPRIDE [Suspect]
     Active Substance: TIAPRIDE
     Indication: Hallucination, visual
     Route: 065
  10. TIAPRIDE [Suspect]
     Active Substance: TIAPRIDE
     Indication: Hallucination, auditory
  11. TIAPRIDE [Suspect]
     Active Substance: TIAPRIDE
     Indication: Hallucination
  12. TIAPRIDE [Suspect]
     Active Substance: TIAPRIDE
     Indication: Persecutory delusion
  13. TIAPRIDE [Suspect]
     Active Substance: TIAPRIDE
     Indication: Behaviour disorder
  14. AMPHOTERICIN B [Concomitant]
     Active Substance: AMPHOTERICIN B
     Indication: Mucormycosis
     Route: 065

REACTIONS (19)
  - Hypoventilation [Unknown]
  - Respiratory acidosis [Unknown]
  - Acidosis [Unknown]
  - Hypercapnia [Unknown]
  - Behaviour disorder [Recovered/Resolved]
  - Persecutory delusion [Recovered/Resolved]
  - Hallucination, auditory [Recovered/Resolved]
  - Hallucination, visual [Recovered/Resolved]
  - Hallucinations, mixed [Recovered/Resolved]
  - Delirium [Recovered/Resolved]
  - Insomnia [Recovered/Resolved]
  - Hallucination [Recovered/Resolved]
  - Somnolence [Recovered/Resolved]
  - Neuropsychological symptoms [Recovered/Resolved]
  - Drug interaction [Unknown]
  - Drug ineffective [Unknown]
  - Somnambulism [Recovered/Resolved]
  - Disorientation [Recovered/Resolved]
  - Toxicity to various agents [Recovered/Resolved]
